FAERS Safety Report 8387674-8 (Version None)
Quarter: 2012Q2

REPORT INFORMATION
  Report Type: 
  Country: None (occurrence: None)
  Receive Date: 20120525
  Receipt Date: 20120522
  Transmission Date: 20120825
  Serious: No
  Sender: FDA-Public Use
  Company Number: US-PFIZER INC-2012124056

PATIENT
  Sex: Female
  Weight: 136 kg

DRUGS (4)
  1. NORVASC [Suspect]
     Indication: HYPERTENSION
     Dosage: UNK, ONCE A DAY
     Route: 048
     Dates: start: 20120301, end: 20120101
  2. NORVASC [Suspect]
     Dosage: 10 MG, 1X/DAY
     Route: 048
     Dates: start: 20120101, end: 20120101
  3. NORVASC [Suspect]
     Dosage: 5 MG, 1X/DAY
     Route: 048
     Dates: start: 20120101
  4. XANAX [Suspect]
     Indication: DEPRESSION
     Dosage: UNK, ONCE A DAY
     Route: 048
     Dates: end: 20111201

REACTIONS (5)
  - MALAISE [None]
  - CHEST DISCOMFORT [None]
  - DYSPNOEA [None]
  - ASTHENIA [None]
  - WEIGHT INCREASED [None]
